FAERS Safety Report 5571647-4 (Version None)
Quarter: 2007Q4

REPORT INFORMATION
  Report Type: 
  Country: None (occurrence: None)
  Receive Date: 20071221
  Receipt Date: 20070905
  Transmission Date: 20080405
  Serious: No
  Sender: FDA-Public Use
  Company Number: US-BRISTOL-MYERS SQUIBB COMPANY-13899000

PATIENT
  Age: 43 Year
  Sex: Female

DRUGS (6)
  1. SPRYCEL [Suspect]
     Indication: PANCREATIC CARCINOMA
     Route: 048
     Dates: start: 20070803
  2. CYMBALTA [Concomitant]
  3. ABILIFY [Concomitant]
  4. TRAZODONE HCL [Concomitant]
  5. IMODIUM [Concomitant]
  6. CELESTAN [Concomitant]

REACTIONS (1)
  - DEPRESSION [None]
